FAERS Safety Report 12583913 (Version 3)
Quarter: 2016Q3

REPORT INFORMATION
  Report Type: Spontaneous
  Country: CA (occurrence: CA)
  Receive Date: 20160722
  Receipt Date: 20160815
  Transmission Date: 20161109
  Serious: Yes (Death, Other)
  Sender: FDA-Public Use
  Company Number: CA-GE HEALTHCARE MEDICAL DIAGNOSTICS-OMPQ-PR-1607S-1248

PATIENT
  Age: 40 Year
  Sex: Female
  Weight: 45.4 kg

DRUGS (6)
  1. OMNIPAQUE [Suspect]
     Active Substance: IOHEXOL
     Indication: ABDOMINAL DISTENSION
  2. BUSCOPAN [Concomitant]
     Active Substance: BUTYLSCOPOLAMINE BROMIDE
  3. OMNIPAQUE [Suspect]
     Active Substance: IOHEXOL
     Indication: ABDOMINAL PAIN
     Route: 042
     Dates: start: 20160714, end: 20160714
  4. OMNIPAQUE [Suspect]
     Active Substance: IOHEXOL
     Indication: COLITIS ULCERATIVE
  5. OMNIPAQUE [Suspect]
     Active Substance: IOHEXOL
     Indication: DIAGNOSTIC PROCEDURE
  6. REMICADE [Concomitant]
     Active Substance: INFLIXIMAB

REACTIONS (9)
  - Death [Fatal]
  - Unresponsive to stimuli [Recovered/Resolved]
  - Muscle tightness [Recovered/Resolved]
  - Chest pain [Unknown]
  - Stridor [Recovered/Resolved]
  - Cyanosis [Recovered/Resolved]
  - Vomiting [Unknown]
  - Nausea [Unknown]
  - Feeling hot [Unknown]

NARRATIVE: CASE EVENT DATE: 20160714
